FAERS Safety Report 16232065 (Version 1)
Quarter: 2019Q2

REPORT INFORMATION
  Report Type: Spontaneous
  Country: US (occurrence: US)
  Receive Date: 20190319
  Receipt Date: 20190319
  Transmission Date: 20190711
  Serious: No
  Sender: FDA-Public Use
  Company Number: None

PATIENT
  Age: 49 Year
  Sex: Male

DRUGS (1)
  1. TECFIDERA [Suspect]
     Active Substance: DIMETHYL FUMARATE
     Indication: MULTIPLE SCLEROSIS
     Route: 048
     Dates: start: 20180111

REACTIONS (9)
  - Hepatic enzyme increased [None]
  - Sluggishness [None]
  - Fatigue [None]
  - Blood pressure increased [None]
  - Asthenia [None]
  - Dizziness [None]
  - Malaise [None]
  - Nausea [None]
  - Jaundice [None]

NARRATIVE: CASE EVENT DATE: 20190310
